FAERS Safety Report 18553015 (Version 1)
Quarter: 2020Q4

REPORT INFORMATION
  Report Type: Spontaneous
  Country: US (occurrence: US)
  Receive Date: 20201127
  Receipt Date: 20201127
  Transmission Date: 20210114
  Serious: No
  Sender: FDA-Public Use
  Company Number: US-BAUSCH-BL-2020-033214

PATIENT
  Age: 65 Year
  Sex: Female

DRUGS (3)
  1. LOTEMAX SM [Suspect]
     Active Substance: LOTEPREDNOL ETABONATE
     Indication: PRODUCT USE IN UNAPPROVED INDICATION
  2. LOTEMAX SM [Suspect]
     Active Substance: LOTEPREDNOL ETABONATE
     Indication: DRY EYE
     Dosage: ONE GTT IN EACH EYE
     Route: 047
     Dates: start: 20201107
  3. ERYTHROMYCIN. [Concomitant]
     Active Substance: ERYTHROMYCIN
     Indication: PRODUCT USED FOR UNKNOWN INDICATION
     Route: 047
     Dates: start: 20201107

REACTIONS (8)
  - Product delivery mechanism issue [Unknown]
  - Eyelid margin crusting [Not Recovered/Not Resolved]
  - Confusional state [Unknown]
  - Product use in unapproved indication [Unknown]
  - Patient dissatisfaction with treatment [Unknown]
  - Extra dose administered [Unknown]
  - Wrong technique in product usage process [Unknown]
  - Eye irritation [Unknown]

NARRATIVE: CASE EVENT DATE: 202011
